FAERS Safety Report 4420051-0 (Version None)
Quarter: 2004Q3

REPORT INFORMATION
  Report Type: 
  Country: None (occurrence: None)
  Receive Date: 20040805
  Receipt Date: 20040805
  Transmission Date: 20050211
  Serious: Yes (Death)
  Sender: FDA-Public Use
  Company Number: None

PATIENT
  Age: 69 Year
  Sex: Male
  Weight: 110.4962 kg

DRUGS (3)
  1. TAXOTERE [Suspect]
     Indication: NON-SMALL CELL LUNG CANCER
     Dosage: 35MG/M2 IV
     Route: 042
     Dates: start: 20030605
  2. TAXOTERE [Suspect]
     Indication: NON-SMALL CELL LUNG CANCER
     Dosage: 35MG/M2 IV
     Route: 042
     Dates: start: 20030612
  3. TAXOTERE [Suspect]
     Indication: NON-SMALL CELL LUNG CANCER
     Dosage: 35MG/M2 IV
     Route: 042
     Dates: start: 20030619

REACTIONS (6)
  - CARDIO-RESPIRATORY ARREST [None]
  - CONFUSIONAL STATE [None]
  - DISORIENTATION [None]
  - MEDICATION ERROR [None]
  - MENTAL STATUS CHANGES [None]
  - RENAL FAILURE ACUTE [None]
